FAERS Safety Report 18291337 (Version 1)
Quarter: 2020Q3

REPORT INFORMATION
  Report Type: Report from Study
  Country: None (occurrence: US)
  Receive Date: 20200922
  Receipt Date: 20200922
  Transmission Date: 20201103
  Serious: Yes (Other)
  Sender: FDA-Public Use
  Company Number: US-ABBVIE-20K-163-3574484-00

PATIENT
  Age: 55 Year
  Sex: Female

DRUGS (1)
  1. HUMIRA [Suspect]
     Active Substance: ADALIMUMAB
     Indication: ANKYLOSING SPONDYLITIS
     Route: 058
     Dates: start: 20190914

REACTIONS (16)
  - Insomnia [Unknown]
  - Mobility decreased [Unknown]
  - Arthralgia [Not Recovered/Not Resolved]
  - Pain [Not Recovered/Not Resolved]
  - Dysstasia [Recovering/Resolving]
  - Fatigue [Not Recovered/Not Resolved]
  - Injection site mass [Unknown]
  - Cardiac valve disease [Recovering/Resolving]
  - Musculoskeletal stiffness [Unknown]
  - Loss of personal independence in daily activities [Not Recovered/Not Resolved]
  - Joint range of motion decreased [Recovering/Resolving]
  - General physical condition abnormal [Not Recovered/Not Resolved]
  - Poor quality sleep [Unknown]
  - Neck pain [Not Recovered/Not Resolved]
  - Iritis [Unknown]
  - Therapeutic response shortened [Not Recovered/Not Resolved]

NARRATIVE: CASE EVENT DATE: 2020
